FAERS Safety Report 13736882 (Version 1)
Quarter: 2017Q3

REPORT INFORMATION
  Report Type: Report from Study
  Country: IT (occurrence: IT)
  Receive Date: 20170710
  Receipt Date: 20170710
  Transmission Date: 20171127
  Serious: Yes (Other)
  Sender: FDA-Public Use
  Company Number: IT-TEVA-783581ROM

PATIENT
  Age: 26 Year
  Sex: Female

DRUGS (2)
  1. IBUPROFEN. [Suspect]
     Active Substance: IBUPROFEN
     Indication: DRUG USE DISORDER
     Route: 048
  2. NIMESULIDE [Suspect]
     Active Substance: NIMESULIDE
     Indication: DRUG USE DISORDER
     Route: 048

REACTIONS (4)
  - Melaena [Recovering/Resolving]
  - Drug abuse [Recovering/Resolving]
  - Haematemesis [Recovering/Resolving]
  - Abdominal pain [Recovering/Resolving]
